FAERS Safety Report 6103810-8 (Version None)
Quarter: 2009Q1

REPORT INFORMATION
  Report Type: 
  Country: None (occurrence: None)
  Receive Date: 20090305
  Receipt Date: 20090219
  Transmission Date: 20090719
  Serious: Yes (Death, Hospitalization, Other)
  Sender: FDA-Public Use
  Company Number: LB-ELI_LILLY_AND_COMPANY-LB200902005090

PATIENT
  Age: 65 Year
  Sex: Male

DRUGS (2)
  1. FORTEO [Suspect]
     Indication: OSTEOPOROSIS
     Dosage: UNK UNK, DAILY (1/D)
     Route: 058
  2. ANALGESICS [Concomitant]
     Indication: ANALGESIA
     Dosage: UNK, UNKNOWN
     Route: 065

REACTIONS (3)
  - LEUKAEMIA [None]
  - PNEUMONIA [None]
  - SEPTIC SHOCK [None]
